FAERS Safety Report 14915149 (Version 3)
Quarter: 2018Q3

REPORT INFORMATION
  Report Type: Not Available
  Country: US (occurrence: US)
  Receive Date: 20180518
  Receipt Date: 20180716
  Transmission Date: 20181010
  Serious: No
  Sender: FDA-Public Use
  Company Number: US-NEUROCRINE BIOSCIENCES INC.-2018NBI01432

PATIENT
  Sex: Female

DRUGS (16)
  1. INGREZZA [Suspect]
     Active Substance: VALBENAZINE
     Route: 048
     Dates: start: 20171005
  2. INGREZZA [Suspect]
     Active Substance: VALBENAZINE
     Route: 048
     Dates: start: 201709
  3. PRAZOLE [Concomitant]
  4. VITAMIN B6 [Concomitant]
     Active Substance: PYRIDOXINE HYDROCHLORIDE
  5. INGREZZA [Suspect]
     Active Substance: VALBENAZINE
     Indication: TARDIVE DYSKINESIA
     Route: 048
     Dates: start: 20171005, end: 20171011
  6. OSCAL [Concomitant]
     Active Substance: CALCIUM CARBONATE
  7. PRAZOSIN. [Concomitant]
     Active Substance: PRAZOSIN
  8. PROPANOLOL [Concomitant]
     Active Substance: PROPRANOLOL HYDROCHLORIDE
  9. MULTIVITAMIN [Concomitant]
     Active Substance: VITAMINS
  10. PRISTIQ EXTENDED?RELEASE [Concomitant]
     Active Substance: DESVENLAFAXINE SUCCINATE
  11. LYRICA [Concomitant]
     Active Substance: PREGABALIN
  12. PANTOPRAZOLE [Concomitant]
     Active Substance: PANTOPRAZOLE
  13. CLONAZEPAM. [Concomitant]
     Active Substance: CLONAZEPAM
  14. FERROUS SULFATE. [Concomitant]
     Active Substance: FERROUS SULFATE
  15. LORATADINE. [Concomitant]
     Active Substance: LORATADINE
  16. MELATONIN [Concomitant]
     Active Substance: MELATONIN

REACTIONS (3)
  - Tremor [Unknown]
  - Abnormal dreams [Unknown]
  - Rash [Unknown]

NARRATIVE: CASE EVENT DATE: 2018
